FAERS Safety Report 5002237-X (Version None)
Quarter: 2006Q2

REPORT INFORMATION
  Report Type: 
  Country: None (occurrence: None)
  Receive Date: 20060511
  Receipt Date: 20060511
  Transmission Date: 20061013
  Serious: No
  Sender: FDA-Public Use
  Company Number: None

PATIENT
  Age: 49 Year
  Sex: Female
  Weight: 84 kg

DRUGS (5)
  1. VANCOMYCIN [Suspect]
     Indication: PNEUMONIA
     Dosage: 1300 MG Q 18 HRS IV
     Route: 042
     Dates: start: 20060412, end: 20060414
  2. VANCOMYCIN [Suspect]
     Indication: PNEUMONIA
     Dosage: 1300 MG Q 18 HRS IV
     Route: 042
     Dates: start: 20060417
  3. CLINDAMYCIN [Concomitant]
  4. REGLAN [Concomitant]
  5. MAXIPIME [Concomitant]

REACTIONS (1)
  - BLOOD CREATININE INCREASED [None]
